FAERS Safety Report 19929174 (Version 2)
Quarter: 2021Q4

REPORT INFORMATION
  Report Type: Spontaneous
  Country: NZ (occurrence: NZ)
  Receive Date: 20211007
  Receipt Date: 20211027
  Transmission Date: 20220303
  Serious: Yes (Other)
  Sender: FDA-Public Use
  Company Number: NZ-MYLANLABS-2021M1069117

PATIENT
  Sex: Male

DRUGS (11)
  1. CLOZARIL [Suspect]
     Active Substance: CLOZAPINE
     Indication: Schizophrenia
     Dosage: UNK
     Route: 048
     Dates: start: 20180111, end: 20210806
  2. CLOZARIL [Suspect]
     Active Substance: CLOZAPINE
     Indication: Hallucination
     Dosage: 25 MILLIGRAM
     Dates: end: 20210805
  3. CLOZARIL [Suspect]
     Active Substance: CLOZAPINE
     Indication: Aggression
  4. FLUDROCORTISONE [Concomitant]
     Active Substance: FLUDROCORTISONE
     Dosage: 150 MICROGRAM
     Route: 048
  5. DOCUSATE SODIUM\SENNOSIDES A AND B [Concomitant]
     Active Substance: DOCUSATE SODIUM\SENNOSIDES A AND B
     Dosage: UNK UNK, BID (DOSE 2 BD)
  6. CARBIDOPA\LEVODOPA [Concomitant]
     Active Substance: CARBIDOPA\LEVODOPA
     Dosage: UNK, DOSE 1 ?7X DLY?
     Route: 048
  7. LORAZEPAM [Concomitant]
     Active Substance: LORAZEPAM
     Dosage: 0.5 MILLIGRAM, DOSE 1 BD
     Route: 048
  8. OMEPRAZOLE [Concomitant]
     Active Substance: OMEPRAZOLE
     Dosage: 20 MILLIGRAM, DOSE 1 MANE
     Route: 048
  9. QUETIAPINE [Concomitant]
     Active Substance: QUETIAPINE
     Dosage: 25 MILLIGRAM, DOSE 2 DINNER TIME
     Route: 048
  10. VENLAFAXINE [Concomitant]
     Active Substance: VENLAFAXINE HYDROCHLORIDE
     Dosage: 50 MILLIGRAM, DOSE 1 MANE
     Route: 048
  11. VENLAFAXINE [Concomitant]
     Active Substance: VENLAFAXINE HYDROCHLORIDE
     Dosage: 37.5 MILLIGRAM, DOSE 1 MANE
     Route: 048

REACTIONS (4)
  - Behaviour disorder [Recovering/Resolving]
  - Drug ineffective [Unknown]
  - Fall [Recovering/Resolving]
  - Orthostatic hypotension [Recovered/Resolved]
